FAERS Safety Report 11906084 (Version 1)
Quarter: 2016Q1

REPORT INFORMATION
  Report Type: Spontaneous
  Country: JP (occurrence: JP)
  Receive Date: 20160111
  Receipt Date: 20160111
  Transmission Date: 20160526
  Serious: Yes (Death, Hospitalization, Other)
  Sender: FDA-Public Use
  Company Number: JP-CIPLA LTD.-2015JP10033

PATIENT

DRUGS (9)
  1. DOCETAXEL. [Suspect]
     Active Substance: DOCETAXEL
     Indication: METASTASES TO LIVER
     Dosage: 60 MG/M2, ON DAY1
     Route: 065
  2. DOCETAXEL. [Suspect]
     Active Substance: DOCETAXEL
     Dosage: 30 MG/M2, ONCE A WEEK FOR 6 WEEKS
     Route: 065
  3. ESTRAMUSTINE SODIUM PHOSPHATE [Suspect]
     Active Substance: ESTRAMUSTINE PHOSPHATE SODIUM
     Indication: METASTASES TO LIVER
     Dosage: 560 MG, QD
     Route: 065
  4. DOCETAXEL. [Suspect]
     Active Substance: DOCETAXEL
     Indication: PROSTATE CANCER
     Dosage: 585 MG, UNK
     Route: 065
  5. CARBOPLATIN. [Suspect]
     Active Substance: CARBOPLATIN
     Indication: PROSTATE CANCER
     Dosage: AUC5, DAY1
     Route: 065
  6. CARBOPLATIN. [Suspect]
     Active Substance: CARBOPLATIN
     Indication: METASTASES TO LIVER
  7. ESTRAMUSTINE SODIUM PHOSPHATE [Suspect]
     Active Substance: ESTRAMUSTINE PHOSPHATE SODIUM
     Indication: PROSTATE CANCER
  8. ETOPOSIDE. [Suspect]
     Active Substance: ETOPOSIDE
     Indication: PROSTATIC SPECIFIC ANTIGEN INCREASED
     Route: 048
  9. DEXAMETHASONE. [Suspect]
     Active Substance: DEXAMETHASONE
     Indication: PROSTATIC SPECIFIC ANTIGEN INCREASED
     Route: 048

REACTIONS (8)
  - Disseminated intravascular coagulation [Fatal]
  - Acute myelomonocytic leukaemia [Unknown]
  - Metastases to liver [Unknown]
  - Malaise [Unknown]
  - General physical health deterioration [Unknown]
  - Anaemia [Unknown]
  - Disease recurrence [Unknown]
  - Multiple organ dysfunction syndrome [Fatal]

NARRATIVE: CASE EVENT DATE: 200704
